FAERS Safety Report 12976021 (Version 4)
Quarter: 2017Q2

REPORT INFORMATION
  Report Type: Report from Study
  Country: None (occurrence: US)
  Receive Date: 20161126
  Receipt Date: 20170404
  Transmission Date: 20170830
  Serious: Yes (Hospitalization, Other)
  Sender: FDA-Public Use
  Company Number: US-ABBVIE-16K-163-1785456-00

PATIENT
  Age: 67 Year
  Sex: Female

DRUGS (1)
  1. HUMIRA [Suspect]
     Active Substance: ADALIMUMAB
     Indication: RHEUMATOID ARTHRITIS
     Route: 058
     Dates: end: 201703

REACTIONS (19)
  - Blindness unilateral [Unknown]
  - Fatigue [Unknown]
  - Rheumatoid arthritis [Unknown]
  - Cerebrovascular accident [Unknown]
  - Headache [Unknown]
  - Parathyroid tumour [Unknown]
  - Dyspnoea [Unknown]
  - Dizziness [Unknown]
  - Somnolence [Unknown]
  - Neck pain [Unknown]
  - Osteoporosis [Unknown]
  - Hypophagia [Unknown]
  - Muscle spasms [Unknown]
  - Brain neoplasm [Unknown]
  - Vasculitis [Unknown]
  - Abasia [Unknown]
  - Osteoporosis [Unknown]
  - Osteoporosis [Unknown]
  - Asthenia [Unknown]

NARRATIVE: CASE EVENT DATE: 201308
